FAERS Safety Report 24379661 (Version 2)
Quarter: 2024Q4

REPORT INFORMATION
  Report Type: Spontaneous
  Country: CA (occurrence: CA)
  Receive Date: 20240930
  Receipt Date: 20241009
  Transmission Date: 20250115
  Serious: Yes (Hospitalization)
  Sender: PURDUE
  Company Number: None

PATIENT
  Age: 3 Decade
  Sex: Male

DRUGS (45)
  1. HYDROMORPHONE HYDROCHLORIDE [Suspect]
     Active Substance: HYDROMORPHONE HYDROCHLORIDE
     Indication: Neuralgia
     Dosage: 1 MILLIGRAM
     Route: 048
  2. HYDROMORPHONE HYDROCHLORIDE [Suspect]
     Active Substance: HYDROMORPHONE HYDROCHLORIDE
     Dosage: 30 MILLIGRAM
     Route: 065
  3. HYDROMORPHONE HYDROCHLORIDE [Suspect]
     Active Substance: HYDROMORPHONE HYDROCHLORIDE
     Dosage: 7 MILLIGRAM
     Route: 065
  4. HYDROMORPHONE HYDROCHLORIDE [Suspect]
     Active Substance: HYDROMORPHONE HYDROCHLORIDE
     Dosage: UNK
     Route: 048
  5. HYDROMORPHONE HYDROCHLORIDE [Suspect]
     Active Substance: HYDROMORPHONE HYDROCHLORIDE
     Dosage: UNK
     Route: 065
  6. ACETAMINOPHEN [Suspect]
     Active Substance: ACETAMINOPHEN
     Indication: Neuralgia
     Dosage: UNK
     Route: 065
  7. ACETAMINOPHEN [Suspect]
     Active Substance: ACETAMINOPHEN
     Indication: Neuralgia
     Dosage: UNK
     Route: 062
  8. IBUPROFEN [Suspect]
     Active Substance: IBUPROFEN
     Indication: Neuralgia
     Dosage: 1600 MILLIGRAM
     Route: 042
  9. IBUPROFEN [Suspect]
     Active Substance: IBUPROFEN
     Dosage: UNK
     Route: 042
  10. DICLOFENAC SODIUM [Suspect]
     Active Substance: DICLOFENAC SODIUM
     Indication: Neuralgia
     Dosage: UNK
     Route: 065
  11. FENTANYL [Suspect]
     Active Substance: FENTANYL
     Indication: Neuralgia
     Dosage: 25 MILLIGRAM, Q1H (1 EVERY 1 HOURS)
     Route: 062
  12. FENTANYL [Suspect]
     Active Substance: FENTANYL
     Dosage: 37.5 MILLIGRAM, Q1H (1 EVERY 1 HOURS)
     Route: 062
  13. FENTANYL [Suspect]
     Active Substance: FENTANYL
     Dosage: UNK
     Route: 062
  14. GABAPENTIN [Suspect]
     Active Substance: GABAPENTIN
     Indication: Neuralgia
     Dosage: 3900 MILLIGRAM
     Route: 065
  15. GABAPENTIN [Suspect]
     Active Substance: GABAPENTIN
     Dosage: 3600 MILLIGRAM
     Route: 048
  16. GABAPENTIN [Suspect]
     Active Substance: GABAPENTIN
     Dosage: 1200 MILLIGRAM
     Route: 065
  17. GABAPENTIN [Suspect]
     Active Substance: GABAPENTIN
     Dosage: 900 MILLIGRAM
     Route: 065
  18. GABAPENTIN [Suspect]
     Active Substance: GABAPENTIN
     Dosage: 300 MILLIGRAM
     Route: 065
  19. GABAPENTIN [Suspect]
     Active Substance: GABAPENTIN
     Dosage: 1800 MILLIGRAM
     Route: 065
  20. GABAPENTIN [Suspect]
     Active Substance: GABAPENTIN
     Dosage: UNK
     Route: 065
  21. GABAPENTIN [Suspect]
     Active Substance: GABAPENTIN
     Dosage: UNK
     Route: 048
  22. HUMAN IMMUNOGLOBULIN G [Suspect]
     Active Substance: HUMAN IMMUNOGLOBULIN G
     Indication: Guillain-Barre syndrome
     Dosage: UNK
     Route: 042
  23. HUMAN IMMUNOGLOBULIN G [Suspect]
     Active Substance: HUMAN IMMUNOGLOBULIN G
     Dosage: 400.0 MG/KG
     Route: 065
  24. HUMAN IMMUNOGLOBULIN G [Suspect]
     Active Substance: HUMAN IMMUNOGLOBULIN G
     Dosage: UNK
     Route: 065
  25. KETAMINE HYDROCHLORIDE [Suspect]
     Active Substance: KETAMINE HYDROCHLORIDE
     Indication: Neuralgia
     Dosage: 30 MILLIGRAM
     Route: 042
  26. KETAMINE HYDROCHLORIDE [Suspect]
     Active Substance: KETAMINE HYDROCHLORIDE
     Dosage: 40 MILLIGRAM
     Route: 048
  27. KETAMINE HYDROCHLORIDE [Suspect]
     Active Substance: KETAMINE HYDROCHLORIDE
     Dosage: UNK
     Route: 042
  28. KETAMINE HYDROCHLORIDE [Suspect]
     Active Substance: KETAMINE HYDROCHLORIDE
     Dosage: UNK
     Route: 048
  29. LIDOCAINE [Suspect]
     Active Substance: LIDOCAINE
     Indication: Neuralgia
     Dosage: 3.84 MILLIGRAM
     Route: 065
  30. LIDOCAINE [Suspect]
     Active Substance: LIDOCAINE
     Dosage: UNK
     Route: 061
  31. NABILONE [Suspect]
     Active Substance: NABILONE
     Indication: Neuralgia
     Dosage: 8 MILLIGRAM
     Route: 042
  32. NABILONE [Suspect]
     Active Substance: NABILONE
     Dosage: 2 MILLIGRAM
     Route: 065
  33. NABILONE [Suspect]
     Active Substance: NABILONE
     Dosage: UNK
     Route: 065
  34. NABILONE [Suspect]
     Active Substance: NABILONE
     Dosage: UNK
     Route: 042
  35. OLANZAPINE [Suspect]
     Active Substance: OLANZAPINE
     Indication: Product used for unknown indication
     Dosage: 2.5 MILLIGRAM
     Route: 065
  36. OLANZAPINE [Suspect]
     Active Substance: OLANZAPINE
     Dosage: 3 MILLIGRAM
     Route: 065
  37. OLANZAPINE [Suspect]
     Active Substance: OLANZAPINE
     Dosage: UNK
     Route: 065
  38. PHENYTOIN [Suspect]
     Active Substance: PHENYTOIN
     Indication: Neuralgia
     Dosage: 1500 MILLIGRAM
     Route: 065
  39. PHENYTOIN [Suspect]
     Active Substance: PHENYTOIN
     Dosage: UNK
     Route: 065
  40. VENLAFAXINE HYDROCHLORIDE [Suspect]
     Active Substance: VENLAFAXINE HYDROCHLORIDE
     Indication: Neuralgia
     Dosage: 75 MILLIGRAM
     Route: 065
  41. VENLAFAXINE HYDROCHLORIDE [Suspect]
     Active Substance: VENLAFAXINE HYDROCHLORIDE
     Dosage: UNK
     Route: 065
  42. ZOPICLONE [Suspect]
     Active Substance: ZOPICLONE
     Indication: Neuralgia
     Dosage: UNK
     Route: 065
  43. ZOPICLONE [Suspect]
     Active Substance: ZOPICLONE
     Dosage: 7.5 MILLIGRAM
     Route: 065
  44. ACETAMINOPHEN [Suspect]
     Active Substance: ACETAMINOPHEN
     Indication: Neuralgia
     Dosage: 2600 MILLIGRAM
     Route: 065
  45. ACETAMINOPHEN [Suspect]
     Active Substance: ACETAMINOPHEN
     Dosage: 3900 MILLIGRAM
     Route: 062

REACTIONS (2)
  - Inspiratory capacity decreased [Unknown]
  - Drug ineffective [Unknown]
